FAERS Safety Report 6969502-8 (Version None)
Quarter: 2010Q3

REPORT INFORMATION
  Report Type: 
  Country: None (occurrence: None)
  Receive Date: 20100907
  Receipt Date: 20100907
  Transmission Date: 20110219
  Serious: Yes (Hospitalization)
  Sender: FDA-Public Use
  Company Number: None

PATIENT
  Age: 72 Year
  Sex: Female
  Weight: 62.1428 kg

DRUGS (2)
  1. EVEROLIMUS RAD001 [Suspect]
     Indication: BREAST CANCER METASTATIC
     Dosage: 5 MG 1 PO Q DAY
     Route: 048
     Dates: start: 20100818, end: 20100822
  2. PHENERGAN [Concomitant]

REACTIONS (3)
  - DIARRHOEA [None]
  - NAUSEA [None]
  - VOMITING [None]
